FAERS Safety Report 11409036 (Version 1)
Quarter: 2015Q3

REPORT INFORMATION
  Report Type: Spontaneous
  Country: GB (occurrence: GB)
  Receive Date: 20150824
  Receipt Date: 20150824
  Transmission Date: 20151125
  Serious: Yes (Other)
  Sender: FDA-Public Use
  Company Number: GB-CIPLA LTD.-2015GB06772

PATIENT

DRUGS (1)
  1. SERTRALINE [Suspect]
     Active Substance: SERTRALINE HYDROCHLORIDE
     Indication: SLEEP DISORDER
     Dosage: 50 MG, QD
     Route: 048
     Dates: start: 20150723, end: 20150726

REACTIONS (3)
  - Photophobia [Recovered/Resolved]
  - Mydriasis [Recovered/Resolved]
  - Pupil fixed [Recovered/Resolved]

NARRATIVE: CASE EVENT DATE: 20150724
